FAERS Safety Report 14243286 (Version 3)
Quarter: 2017Q4

REPORT INFORMATION
  Report Type: Spontaneous
  Country: IT (occurrence: IT)
  Receive Date: 20171201
  Receipt Date: 20171210
  Transmission Date: 20180321
  Serious: Yes (Other)
  Sender: FDA-Public Use
  Company Number: IT-TEVA-2017-IT-827449

PATIENT
  Sex: Female

DRUGS (3)
  1. TICLOPIDINA DOROM [Suspect]
     Active Substance: TICLOPIDINE HYDROCHLORIDE
     Indication: CARDIOVASCULAR EVENT PROPHYLAXIS
  2. LEVOPRAID (SULPIRIDE) [Concomitant]
     Active Substance: SULPIRIDE
     Indication: GASTRITIS
  3. GAVISCON [Concomitant]
     Active Substance: ALUMINUM HYDROXIDE\MAGNESIUM CARBONATE
     Indication: GASTRITIS

REACTIONS (6)
  - Liver disorder [Unknown]
  - Blood cholesterol increased [Unknown]
  - Dysgeusia [Recovered/Resolved]
  - Cholestasis [Unknown]
  - Gamma-glutamyltransferase abnormal [Unknown]
  - Diarrhoea [Unknown]
